FAERS Safety Report 5951108-0 (Version None)
Quarter: 2008Q4

REPORT INFORMATION
  Report Type: 
  Country: None (occurrence: None)
  Receive Date: 20081112
  Receipt Date: 20081112
  Transmission Date: 20090506
  Serious: Yes (Other)
  Sender: FDA-Public Use
  Company Number: None

PATIENT
  Age: 62 Year
  Sex: Female
  Weight: 67.1324 kg

DRUGS (2)
  1. PANTOPRAZOLE SODIUM [Suspect]
     Indication: GASTRIC ULCER HAEMORRHAGE
     Dosage: ONE TWICE DAILY
     Dates: start: 20081107, end: 20081109
  2. PANTOPRAZOLE SODIUM [Suspect]
     Indication: IMMUNODEFICIENCY COMMON VARIABLE
     Dosage: ONE TWICE DAILY
     Dates: start: 20081107, end: 20081109

REACTIONS (5)
  - ABDOMINAL PAIN UPPER [None]
  - ASTHMA [None]
  - DYSPNOEA [None]
  - OROPHARYNGEAL PAIN [None]
  - PRODUCT QUALITY ISSUE [None]
